FAERS Safety Report 9698199 (Version 3)
Quarter: 2013Q4

REPORT INFORMATION
  Report Type: Spontaneous
  Country: AU (occurrence: AU)
  Receive Date: 20131120
  Receipt Date: 20131203
  Transmission Date: 20140711
  Serious: Yes (Other)
  Sender: FDA-Public Use
  Company Number: AU-BRISTOL-MYERS SQUIBB COMPANY-19550557

PATIENT
  Sex: Male

DRUGS (1)
  1. ELIQUIS [Suspect]
     Dates: start: 2013

REACTIONS (6)
  - Hepatitis [Recovering/Resolving]
  - Renal impairment [Recovering/Resolving]
  - Rectal haemorrhage [Recovering/Resolving]
  - Dizziness [Unknown]
  - Somnolence [Unknown]
  - Depressed mood [Unknown]
